FAERS Safety Report 9351019 (Version 1)
Quarter: 2013Q2

REPORT INFORMATION
  Report Type: Spontaneous
  Country: US (occurrence: US)
  Receive Date: 20130617
  Receipt Date: 20130617
  Transmission Date: 20140414
  Serious: Yes (Other)
  Sender: FDA-Public Use
  Company Number: US-BRISTOL-MYERS SQUIBB COMPANY-19010305

PATIENT
  Age: 58 Year
  Sex: Male
  Weight: 4.98 kg

DRUGS (2)
  1. BYDUREON [Suspect]
     Indication: TYPE 2 DIABETES MELLITUS
  2. METFORMIN [Concomitant]

REACTIONS (3)
  - Pneumonia [Recovered/Resolved]
  - Injection site nodule [Unknown]
  - Weight decreased [Unknown]
